FAERS Safety Report 5850186-7 (Version None)
Quarter: 2008Q3

REPORT INFORMATION
  Report Type: 
  Country: None (occurrence: None)
  Receive Date: 20080819
  Receipt Date: 20080812
  Transmission Date: 20090109
  Serious: No
  Sender: FDA-Public Use
  Company Number: US-BOEHRINGER INGELHEIM GMBH, GERMANY-2008-BP-12703BP

PATIENT
  Sex: Male

DRUGS (1)
  1. ZANTAC [Suspect]
     Indication: GASTROOESOPHAGEAL REFLUX DISEASE
     Route: 048
     Dates: start: 20080701, end: 20080801

REACTIONS (2)
  - BACK PAIN [None]
  - RENAL PAIN [None]
